FAERS Safety Report 20084379 (Version 3)
Quarter: 2022Q1

REPORT INFORMATION
  Report Type: Report from Study
  Country: CA (occurrence: CA)
  Receive Date: 20211118
  Receipt Date: 20220103
  Transmission Date: 20220424
  Serious: Yes (Other)
  Sender: FDA-Public Use
  Company Number: CA-JNJFOC-20210128347

PATIENT
  Age: 68 Year
  Sex: Male
  Weight: 113 kg

DRUGS (2)
  1. REMICADE [Suspect]
     Active Substance: INFLIXIMAB
     Indication: Crohn^s disease
     Route: 042
     Dates: start: 20120731
  2. REMICADE [Suspect]
     Active Substance: INFLIXIMAB
     Dosage: EXPIRY DATE: 31-MAY-2024
     Route: 042

REACTIONS (13)
  - Hypertension [Not Recovered/Not Resolved]
  - Circumcision [Recovered/Resolved]
  - Fungal oesophagitis [Unknown]
  - Fall [Unknown]
  - Rib fracture [Unknown]
  - Post procedural infection [Not Recovered/Not Resolved]
  - Dizziness [Recovered/Resolved]
  - Contusion [Unknown]
  - Penile infection [Not Recovered/Not Resolved]
  - Anxiety [Unknown]
  - Vasectomy [Recovered/Resolved]
  - Stress [Unknown]
  - Tension [Unknown]

NARRATIVE: CASE EVENT DATE: 20211001
